FAERS Safety Report 6920279-1 (Version None)
Quarter: 2010Q3

REPORT INFORMATION
  Report Type: 
  Country: None (occurrence: None)
  Receive Date: 20100809
  Receipt Date: 20100729
  Transmission Date: 20110219
  Serious: Yes (Hospitalization, Disabling)
  Sender: FDA-Public Use
  Company Number: 2010SP041538

PATIENT
  Age: 50 Year
  Sex: Female

DRUGS (1)
  1. SAPHRIS [Suspect]
     Indication: BIPOLAR I DISORDER
     Dosage: 10 MG; BID; SL
     Route: 060
     Dates: start: 20100601, end: 20100601

REACTIONS (2)
  - MANIA [None]
  - TREATMENT NONCOMPLIANCE [None]
